FAERS Safety Report 5855641-1 (Version None)
Quarter: 2008Q3

REPORT INFORMATION
  Report Type: 
  Country: None (occurrence: None)
  Receive Date: 20080823
  Receipt Date: 20080813
  Transmission Date: 20090109
  Serious: Yes (Death, Other)
  Sender: FDA-Public Use
  Company Number: MX-ELI_LILLY_AND_COMPANY-MX200805000475

PATIENT
  Age: 33 Year
  Sex: Female
  Weight: 87 kg

DRUGS (4)
  1. HUMULIN N [Suspect]
     Indication: TYPE 2 DIABETES MELLITUS
     Dosage: 10 IU, EACH MORNING
     Route: 058
     Dates: start: 20080424
  2. ALMAX [Concomitant]
     Indication: NAUSEA
     Dosage: UNK, UNKNOWN
     Route: 048
  3. ELEVIT [Concomitant]
     Dosage: UNK, UNKNOWN
     Route: 048
  4. ORAL BLOOD GLUCOSE LOWERING DRUGS [Concomitant]
     Dosage: UNK, UNKNOWN
     Route: 065

REACTIONS (6)
  - DEPRESSION [None]
  - DEPRESSION SUICIDAL [None]
  - DRUG EXPOSURE DURING PREGNANCY [None]
  - INTRA-UTERINE DEATH [None]
  - VAGINAL HAEMORRHAGE [None]
  - VULVOVAGINAL PRURITUS [None]
